FAERS Safety Report 19688415 (Version 2)
Quarter: 2021Q4

REPORT INFORMATION
  Report Type: Report from Study
  Country: US (occurrence: US)
  Receive Date: 20210811
  Receipt Date: 20211101
  Transmission Date: 20220303
  Serious: Yes (Hospitalization, Other)
  Sender: FDA-Public Use
  Company Number: US-INCYTE CORPORATION-2021IN006655

PATIENT

DRUGS (2)
  1. JAKAFI [Suspect]
     Active Substance: RUXOLITINIB
     Indication: Myelofibrosis
     Dosage: 5 MILLIGRAM, BID
     Route: 048
     Dates: start: 20210511, end: 20210703
  2. JAKAFI [Suspect]
     Active Substance: RUXOLITINIB
     Dosage: 5 MILLIGRAM, BID
     Route: 048
     Dates: start: 20210916

REACTIONS (6)
  - Intestinal obstruction [Unknown]
  - Bacteraemia [Unknown]
  - Asthenia [Unknown]
  - Volvulus [Unknown]
  - Abdominal adhesions [Unknown]
  - Weight decreased [Unknown]

NARRATIVE: CASE EVENT DATE: 20211021
